FAERS Safety Report 8617508-5 (Version None)
Quarter: 2012Q3

REPORT INFORMATION
  Report Type: 
  Country: None (occurrence: None)
  Receive Date: 20120824
  Receipt Date: 20120330
  Transmission Date: 20120928
  Serious: No
  Sender: FDA-Public Use
  Company Number: US-ASTRAZENECA-2011SE66736

PATIENT
  Age: 59 Year
  Sex: Male

DRUGS (2)
  1. ANTIBIOTICS [Concomitant]
     Route: 065
  2. SYMBICORT [Suspect]
     Dosage: UNKNOWN FREQUENCY.
     Route: 055

REACTIONS (10)
  - RESPIRATORY ARREST [None]
  - INFLUENZA [None]
  - RESPIRATORY RATE DECREASED [None]
  - MALAISE [None]
  - CHEST DISCOMFORT [None]
  - DRUG DOSE OMISSION [None]
  - CHRONIC OBSTRUCTIVE PULMONARY DISEASE [None]
  - GAIT DISTURBANCE [None]
  - NASAL CONGESTION [None]
  - DYSPNOEA [None]
